FAERS Safety Report 8524514-8 (Version None)
Quarter: 2012Q3

REPORT INFORMATION
  Report Type: 
  Country: None (occurrence: None)
  Receive Date: 20120720
  Receipt Date: 20120711
  Transmission Date: 20120928
  Serious: Yes (Hospitalization, Other)
  Sender: FDA-Public Use
  Company Number: BR-ACTELION-A-CH2011-56333

PATIENT
  Sex: Female
  Weight: 58 kg

DRUGS (5)
  1. TRACLEER [Suspect]
     Indication: PULMONARY ARTERIAL HYPERTENSION
     Dosage: 125 MG, BID
     Route: 048
     Dates: start: 20080727
  2. ALDACTONE [Concomitant]
  3. TRACLEER [Interacting]
     Dosage: 62.5 MG, BID
     Route: 048
     Dates: start: 20080626, end: 20080726
  4. PLAVIX [Concomitant]
  5. SILDENAFIL [Interacting]
     Indication: PULMONARY ARTERIAL HYPERTENSION

REACTIONS (12)
  - OXYGEN SATURATION DECREASED [None]
  - PO2 DECREASED [None]
  - ARRHYTHMIA SUPRAVENTRICULAR [None]
  - PULMONARY ARTERIAL PRESSURE INCREASED [None]
  - CONDITION AGGRAVATED [None]
  - GASTROENTERITIS [None]
  - ATRIAL TACHYCARDIA [None]
  - ISCHAEMIC STROKE [None]
  - DRUG INTERACTION [None]
  - DEEP VEIN THROMBOSIS [None]
  - VENTRICULAR TACHYCARDIA [None]
  - PULMONARY ARTERIAL HYPERTENSION [None]
